FAERS Safety Report 19235802 (Version 2)
Quarter: 2021Q4

REPORT INFORMATION
  Report Type: Spontaneous
  Country: GB (occurrence: GB)
  Receive Date: 20210510
  Receipt Date: 20211122
  Transmission Date: 20220303
  Serious: Yes (Other)
  Sender: FDA-Public Use
  Company Number: None

PATIENT
  Age: 38 Year
  Sex: Female
  Weight: 63 kg

DRUGS (3)
  1. BETAMETHASONE VALERATE [Suspect]
     Active Substance: BETAMETHASONE VALERATE
     Indication: Ill-defined disorder
     Dosage: UNK
     Route: 061
     Dates: start: 202009, end: 202103
  2. HYDROCORTISONE [Suspect]
     Active Substance: HYDROCORTISONE
     Indication: Ill-defined disorder
     Dosage: UNK
     Route: 061
     Dates: start: 201807, end: 201902
  3. SYNALAR [Suspect]
     Active Substance: FLUOCINOLONE ACETONIDE
     Indication: Eczema
     Dosage: UNK
     Route: 061
     Dates: start: 201903, end: 20191010

REACTIONS (3)
  - Eczema [Not Recovered/Not Resolved]
  - Conjunctival hyperaemia [Unknown]
  - Pruritus [Unknown]
